FAERS Safety Report 6862067-0 (Version None)
Quarter: 2010Q3

REPORT INFORMATION
  Report Type: 
  Country: None (occurrence: None)
  Receive Date: 20100721
  Receipt Date: 20100713
  Transmission Date: 20110219
  Serious: Yes (Death)
  Sender: FDA-Public Use
  Company Number: JP-ABBOTT-10P-087-0644362-00

PATIENT
  Sex: Male
  Weight: 60 kg

DRUGS (3)
  1. HUMIRA [Suspect]
     Indication: RHEUMATOID ARTHRITIS
     Route: 058
     Dates: start: 20090702, end: 20100406
  2. TACROLIMUS [Suspect]
     Indication: RHEUMATOID ARTHRITIS
     Dosage: DAILY DOSE: 1MG
     Route: 048
     Dates: start: 20091215, end: 20100406
  3. METHOTREXATE [Suspect]
     Indication: PRODUCT USED FOR UNKNOWN INDICATION
     Route: 048
     Dates: start: 20091216, end: 20100406

REACTIONS (9)
  - ABDOMINAL DISCOMFORT [None]
  - ALANINE AMINOTRANSFERASE INCREASED [None]
  - ASPARTATE AMINOTRANSFERASE INCREASED [None]
  - BRONCHIECTASIS [None]
  - COAGULOPATHY [None]
  - HEPATITIS FULMINANT [None]
  - LIVER DISORDER [None]
  - RENAL DISORDER [None]
  - RESPIRATORY DISORDER [None]
